FAERS Safety Report 4989043-7 (Version None)
Quarter: 2006Q2

REPORT INFORMATION
  Report Type: 
  Country: None (occurrence: None)
  Receive Date: 20060425
  Receipt Date: 20060412
  Transmission Date: 20061013
  Serious: Yes (Hospitalization)
  Sender: FDA-Public Use
  Company Number: 2006RR-02077

PATIENT
  Age: 40 Year
  Sex: Female

DRUGS (2)
  1. CLOMIPRAMINE HCL [Suspect]
  2. FLUOXETINE [Suspect]

REACTIONS (9)
  - ALCOHOL POISONING [None]
  - CONFUSIONAL STATE [None]
  - ELECTROCARDIOGRAM QRS COMPLEX PROLONGED [None]
  - GRAND MAL CONVULSION [None]
  - INTENTIONAL OVERDOSE [None]
  - METABOLIC ACIDOSIS [None]
  - SINUS TACHYCARDIA [None]
  - SOMNOLENCE [None]
  - VENTRICULAR TACHYCARDIA [None]
